FAERS Safety Report 9389072 (Version 7)
Quarter: 2016Q4

REPORT INFORMATION
  Report Type: Report from Study
  Country: JP (occurrence: JP)
  Receive Date: 20130708
  Receipt Date: 20161021
  Transmission Date: 20170207
  Serious: Yes (Death, Hospitalization, Other)
  Sender: FDA-Public Use
  Company Number: JP-GILEAD-2013-0077747

PATIENT
  Age: 68 Year
  Sex: Female
  Weight: 43 kg

DRUGS (21)
  1. REVATIO [Suspect]
     Active Substance: SILDENAFIL CITRATE
     Indication: PULMONARY HYPERTENSION
     Dosage: UNK
     Route: 048
     Dates: start: 20130524, end: 20130603
  2. WARFARIN [Suspect]
     Active Substance: WARFARIN
     Indication: PRODUCT USED FOR UNKNOWN INDICATION
     Dosage: UNK
     Route: 048
  3. AVAPRO [Concomitant]
     Active Substance: IRBESARTAN
     Dosage: UNK
     Route: 048
     Dates: end: 20140814
  4. AMBRISENTAN [Suspect]
     Active Substance: AMBRISENTAN
     Indication: PULMONARY ARTERIAL HYPERTENSION
     Dosage: 7.5 MG, QD
     Route: 048
     Dates: start: 20120610, end: 20131114
  5. AMBRISENTAN [Suspect]
     Active Substance: AMBRISENTAN
     Dosage: 10 MG, QD
     Route: 065
     Dates: start: 20131115, end: 20140814
  6. AMBRISENTAN [Suspect]
     Active Substance: AMBRISENTAN
     Indication: PULMONARY ARTERIAL HYPERTENSION
     Dosage: 2.5 MG, QD
     Route: 048
     Dates: start: 20120331, end: 20120406
  7. ALDACTONE A [Concomitant]
     Active Substance: SPIRONOLACTONE
     Route: 048
  8. AMBRISENTAN [Suspect]
     Active Substance: AMBRISENTAN
     Dosage: 5 MG, QD
     Route: 048
     Dates: start: 20120407, end: 20120609
  9. REVATIO [Suspect]
     Active Substance: SILDENAFIL CITRATE
     Indication: PULMONARY ARTERIAL HYPERTENSION
  10. AVAPRO [Concomitant]
     Active Substance: IRBESARTAN
     Route: 048
  11. CALCITAROL [Concomitant]
     Dosage: UNK
     Route: 048
     Dates: start: 20120816, end: 20130829
  12. VITAMINS NOS [Suspect]
     Active Substance: VITAMINS
     Indication: PRODUCT USED FOR UNKNOWN INDICATION
     Dosage: UNK
     Route: 048
  13. ALDACTONE A [Concomitant]
     Active Substance: SPIRONOLACTONE
     Dosage: UNK
     Route: 048
     Dates: end: 20140708
  14. DIGOXIN. [Concomitant]
     Active Substance: DIGOXIN
     Dosage: UNK
     Route: 048
     Dates: end: 20140814
  15. DIGOXIN. [Concomitant]
     Active Substance: DIGOXIN
     Route: 048
  16. AVAPRO [Concomitant]
     Active Substance: IRBESARTAN
     Route: 048
  17. PREDNISOLONE. [Concomitant]
     Active Substance: PREDNISOLONE
     Dosage: UNK
     Dates: end: 20140814
  18. AVAPRO [Concomitant]
     Active Substance: IRBESARTAN
     Dosage: UNK
     Route: 048
     Dates: end: 20140814
  19. AVAPRO [Concomitant]
     Active Substance: IRBESARTAN
     Route: 048
  20. TERIBONE [Concomitant]
     Active Substance: TERIPARATIDE ACETATE
     Dosage: UNK
     Route: 058
     Dates: start: 20130803, end: 20140809
  21. DIART [Concomitant]
     Active Substance: AZOSEMIDE
     Dosage: UNK
     Dates: start: 20130708, end: 20140814

REACTIONS (5)
  - Pulmonary hypertension [Fatal]
  - Anaemia [Recovered/Resolved]
  - Off label use [Recovered/Resolved]
  - Platelet count decreased [Recovering/Resolving]
  - Osteoporosis [Unknown]

NARRATIVE: CASE EVENT DATE: 20120331
